FAERS Safety Report 4459570-X (Version None)
Quarter: 2004Q3

REPORT INFORMATION
  Report Type: 
  Country: None (occurrence: None)
  Receive Date: 20040910
  Receipt Date: 20040608
  Transmission Date: 20050211
  Serious: No
  Sender: FDA-Public Use
  Company Number: 2004217846US

PATIENT
  Sex: Male

DRUGS (2)
  1. BEXTRA [Suspect]
  2. LIPITOR [Suspect]

REACTIONS (1)
  - MUSCULOSKELETAL DISCOMFORT [None]
